FAERS Safety Report 21144709 (Version 1)
Quarter: 2022Q3

REPORT INFORMATION
  Report Type: Spontaneous
  Country: US (occurrence: US)
  Receive Date: 20220728
  Receipt Date: 20220728
  Transmission Date: 20221027
  Serious: No
  Sender: FDA-Public Use
  Company Number: US-009507513-2207USA006191

PATIENT
  Age: 29 Year
  Sex: Female

DRUGS (1)
  1. KEYTRUDA [Suspect]
     Active Substance: PEMBROLIZUMAB
     Indication: Malignant melanoma stage II
     Dosage: EVERY 6 WEEKS
     Route: 042
     Dates: start: 202201

REACTIONS (2)
  - Maternal exposure during pregnancy [Unknown]
  - No adverse event [Unknown]
